FAERS Safety Report 5673324-8 (Version None)
Quarter: 2008Q1

REPORT INFORMATION
  Report Type: 
  Country: None (occurrence: None)
  Receive Date: 20080319
  Receipt Date: 20080314
  Transmission Date: 20080703
  Serious: Yes (Other)
  Sender: FDA-Public Use
  Company Number: US-ASTRAZENECA-2008UW04519

PATIENT
  Sex: Male
  Weight: 22.7 kg

DRUGS (1)
  1. PULMICORT RESPULES [Suspect]
     Dosage: BID PRN
     Route: 055

REACTIONS (1)
  - LARYNGOSPASM [None]
